APPROVED DRUG PRODUCT: DOCETAXEL
Active Ingredient: DOCETAXEL
Strength: 160MG/16ML (10MG/ML)
Dosage Form/Route: INJECTABLE;INJECTION
Application: A209634 | Product #003 | TE Code: AP
Applicant: MEITHEAL PHARMACEUTICALS INC
Approved: Aug 24, 2018 | RLD: No | RS: No | Type: RX